FAERS Safety Report 6687910-X (Version None)
Quarter: 2010Q2

REPORT INFORMATION
  Report Type: 
  Country: None (occurrence: None)
  Receive Date: 20100420
  Receipt Date: 20100412
  Transmission Date: 20101027
  Serious: Yes (Other)
  Sender: FDA-Public Use
  Company Number: US-ASTRAZENECA-2009UW19070

PATIENT
  Age: 9678 Day
  Sex: Male

DRUGS (4)
  1. SEROQUEL [Suspect]
     Route: 048
     Dates: start: 20040713
  2. ZIAC [Concomitant]
     Dates: start: 20040728
  3. LISINOPRIL [Concomitant]
     Dates: start: 20040830
  4. LODINE [Concomitant]
     Dates: start: 20060101

REACTIONS (5)
  - DIABETES MELLITUS [None]
  - GLUCOSE TOLERANCE IMPAIRED [None]
  - INSULIN RESISTANCE SYNDROME [None]
  - NERVE COMPRESSION [None]
  - TYPE 2 DIABETES MELLITUS [None]
